FAERS Safety Report 4572175-5 (Version None)
Quarter: 2005Q1

REPORT INFORMATION
  Report Type: 
  Country: None (occurrence: None)
  Receive Date: 20050202
  Receipt Date: 20050118
  Transmission Date: 20050727
  Serious: Yes (Hospitalization, Other)
  Sender: FDA-Public Use
  Company Number: USA050188593

PATIENT
  Age: 76 Year
  Sex: Male

DRUGS (1)
  1. HUMATROPE [Suspect]
     Dates: start: 20030101

REACTIONS (5)
  - CHEST PAIN [None]
  - CORONARY ARTERY THROMBOSIS [None]
  - KIDNEY INFECTION [None]
  - MYOCARDIAL INFARCTION [None]
  - PHARMACEUTICAL PRODUCT COMPLAINT [None]
